FAERS Safety Report 12964329 (Version 1)
Quarter: 2016Q4

REPORT INFORMATION
  Report Type: Spontaneous
  Country: US (occurrence: US)
  Receive Date: 20161122
  Receipt Date: 20161122
  Transmission Date: 20170207
  Serious: No
  Sender: FDA-Public Use
  Company Number: US-PFIZER INC-2016538269

PATIENT
  Age: 64 Year
  Sex: Male

DRUGS (7)
  1. GABAPENTIN. [Suspect]
     Active Substance: GABAPENTIN
     Dosage: UNK
  2. HYDROCODONE [Suspect]
     Active Substance: HYDROCODONE
     Dosage: UNK
  3. CYMBALTA [Suspect]
     Active Substance: DULOXETINE HYDROCHLORIDE
     Dosage: UNK
  4. FLEXERIL [Suspect]
     Active Substance: CYCLOBENZAPRINE HYDROCHLORIDE
     Dosage: 10 MG, DAILY
     Route: 048
  5. MOTRIN [Suspect]
     Active Substance: IBUPROFEN
  6. TOPAMAX [Suspect]
     Active Substance: TOPIRAMATE
     Dosage: 100 MG, 2X/DAY
     Route: 048
  7. DICLOFENAC SODIUM. [Suspect]
     Active Substance: DICLOFENAC SODIUM
     Dosage: UNK

REACTIONS (1)
  - Drug ineffective [Unknown]
